FAERS Safety Report 7974253-7 (Version None)
Quarter: 2011Q4

REPORT INFORMATION
  Report Type: 
  Country: None (occurrence: None)
  Receive Date: 20111209
  Receipt Date: 20111122
  Transmission Date: 20120403
  Serious: Yes (Hospitalization, Other)
  Sender: FDA-Public Use
  Company Number: DSU-2011-08749

PATIENT
  Age: 70 Year
  Sex: Male
  Weight: 86.1834 kg

DRUGS (4)
  1. WELCHOL [Suspect]
     Indication: HYPERCHOLESTEROLAEMIA
     Dosage: 3.75 GM (3.75 GM, QD), PER ORAL
     Route: 048
     Dates: start: 20110901
  2. AVAPRO [Concomitant]
  3. WELCHOL [Suspect]
     Indication: HYPERCHOLESTEROLAEMIA
     Dosage: 3750 MG (1875 MG, BID), PER ORAL
     Route: 048
     Dates: start: 20080101, end: 20110901
  4. ZOCOR [Concomitant]

REACTIONS (5)
  - BLINDNESS UNILATERAL [None]
  - PAIN [None]
  - CALCULUS BLADDER [None]
  - OPTIC NERVE DISORDER [None]
  - CONSTIPATION [None]
